FAERS Safety Report 12780352 (Version 2)
Quarter: 2016Q4

REPORT INFORMATION
  Report Type: Report from Study
  Country: BR (occurrence: BR)
  Receive Date: 20160926
  Receipt Date: 20161027
  Transmission Date: 20170207
  Serious: Yes (Hospitalization)
  Sender: FDA-Public Use
  Company Number: PHHY2016BR130186

PATIENT
  Sex: Female
  Weight: 61 kg

DRUGS (1)
  1. EXJADE [Suspect]
     Active Substance: DEFERASIROX
     Indication: SICKLE CELL ANAEMIA
     Dosage: 1000 MG, UNK
     Route: 048

REACTIONS (7)
  - Memory impairment [Unknown]
  - Oral pain [Unknown]
  - Speech disorder [Unknown]
  - Leukaemia [Unknown]
  - Stomatitis [Unknown]
  - Serum ferritin decreased [Unknown]
  - Neck mass [Unknown]
